FAERS Safety Report 19847099 (Version 1)
Quarter: 2021Q3

REPORT INFORMATION
  Report Type: Spontaneous
  Country: GB (occurrence: GB)
  Receive Date: 20210917
  Receipt Date: 20210917
  Transmission Date: 20211014
  Serious: Yes (Other)
  Sender: FDA-Public Use
  Company Number: GB-SUN PHARMACEUTICAL INDUSTRIES LTD-2020R1-275060

PATIENT
  Age: 20 Year
  Sex: Female

DRUGS (4)
  1. FUROSEMIDE. [Suspect]
     Active Substance: FUROSEMIDE
     Indication: GLOMERULONEPHRITIS MINIMAL LESION
     Dosage: UNK
     Route: 065
  2. ASPIRIN. [Suspect]
     Active Substance: ASPIRIN
     Indication: PROPHYLAXIS
     Dosage: UNK
     Route: 065
  3. ENOXAPARIN SODIUM. [Suspect]
     Active Substance: ENOXAPARIN SODIUM
     Indication: PROPHYLAXIS
     Dosage: UNK (40 MG)
     Route: 065
  4. ADVAGRAF [Suspect]
     Active Substance: TACROLIMUS
     Indication: GLOMERULONEPHRITIS MINIMAL LESION
     Dosage: UNK (6 MG)
     Route: 065

REACTIONS (5)
  - Blood albumin increased [Unknown]
  - Exposure during pregnancy [Unknown]
  - Haemoglobin decreased [Unknown]
  - Upper gastrointestinal haemorrhage [Unknown]
  - Live birth [Unknown]
